FAERS Safety Report 5072190-1 (Version None)
Quarter: 2006Q3

REPORT INFORMATION
  Report Type: 
  Country: None (occurrence: None)
  Receive Date: 20060807
  Receipt Date: 20060609
  Transmission Date: 20061208
  Serious: Yes (Hospitalization)
  Sender: FDA-Public Use
  Company Number: JP-BAYER-200610777BYL

PATIENT
  Age: 66 Year
  Sex: Male
  Weight: 56 kg

DRUGS (8)
  1. GLUCOBAY [Suspect]
     Indication: DIABETES MELLITUS
     Dosage: TOTAL DAILY DOSE: 150 MG  UNIT DOSE: 50 MG
     Route: 048
     Dates: start: 20060404, end: 20060529
  2. ASPIRIN [Suspect]
     Indication: ANGINA PECTORIS
     Dosage: TOTAL DAILY DOSE: 100 MG  UNIT DOSE: 100 MG
     Route: 048
     Dates: start: 20060329, end: 20060529
  3. LASIX [Concomitant]
     Indication: CARDIAC FAILURE CONGESTIVE
     Dosage: TOTAL DAILY DOSE: 20 MG
     Route: 048
     Dates: start: 20060330, end: 20060515
  4. FAMOTIDINE [Concomitant]
     Indication: GASTRITIS
     Dosage: TOTAL DAILY DOSE: 40 MG  UNIT DOSE: 20 MG
     Route: 048
     Dates: start: 20060330, end: 20060519
  5. DIBETOS B [Concomitant]
     Indication: DIABETES MELLITUS
     Dosage: TOTAL DAILY DOSE: 150 MG  UNIT DOSE: 50 MG
     Route: 048
     Dates: start: 20060330, end: 20060519
  6. TICLOPIDINE HCL [Concomitant]
     Route: 048
     Dates: start: 20060426, end: 20060523
  7. NU-LOTAN [Concomitant]
     Route: 048
     Dates: start: 20060426, end: 20060516
  8. ARTIST [Concomitant]
     Route: 048
     Dates: start: 20060509, end: 20060529

REACTIONS (1)
  - EOSINOPHILIA [None]
